FAERS Safety Report 8054322-6 (Version None)
Quarter: 2012Q1

REPORT INFORMATION
  Report Type: 
  Country: None (occurrence: None)
  Receive Date: 20120118
  Receipt Date: 20120112
  Transmission Date: 20120608
  Serious: Yes (Other)
  Sender: FDA-Public Use
  Company Number: PHHY2012FR003851

PATIENT

DRUGS (3)
  1. CORTICOSTEROIDS [Concomitant]
  2. AZATHIOPRINE [Concomitant]
  3. CYCLOSPORINE [Suspect]
     Indication: LIVER TRANSPLANT
     Dosage: UNK

REACTIONS (1)
  - DIABETES MELLITUS [None]
